FAERS Safety Report 24384337 (Version 1)
Quarter: 2024Q4

REPORT INFORMATION
  Report Type: Spontaneous
  Country: US (occurrence: US)
  Receive Date: 20241001
  Receipt Date: 20241001
  Transmission Date: 20250114
  Serious: Yes (Hospitalization, Other)
  Sender: ALEXION PHARMACEUTICALS
  Company Number: US-ALXN-202409USA005763US

PATIENT
  Age: 23 Year

DRUGS (4)
  1. SOLIRIS [Suspect]
     Active Substance: ECULIZUMAB
     Indication: Paroxysmal nocturnal haemoglobinuria
     Dosage: UNK
     Route: 065
  2. SOLIRIS [Suspect]
     Active Substance: ECULIZUMAB
     Dosage: UNK
  3. SOLIRIS [Suspect]
     Active Substance: ECULIZUMAB
     Dosage: UNK
     Route: 065
  4. SOLIRIS [Suspect]
     Active Substance: ECULIZUMAB
     Dosage: UNK

REACTIONS (11)
  - Blindness transient [Unknown]
  - Blindness unilateral [Unknown]
  - Photopsia [Unknown]
  - Bruxism [Unknown]
  - Vomiting [Unknown]
  - Epistaxis [Unknown]
  - Purpura [Unknown]
  - Haematoma [Unknown]
  - Pain [Unknown]
  - Insomnia [Unknown]
  - Headache [Unknown]
